FAERS Safety Report 13959153 (Version 1)
Quarter: 2017Q3

REPORT INFORMATION
  Report Type: Spontaneous
  Country: US (occurrence: US)
  Receive Date: 20170912
  Receipt Date: 20170912
  Transmission Date: 20171128
  Serious: Yes (Hospitalization, Other)
  Sender: FDA-Public Use
  Company Number: US-ZYDUS-016558

PATIENT
  Age: 65 Year
  Sex: Female

DRUGS (2)
  1. VANCOMYCIN [Suspect]
     Active Substance: VANCOMYCIN
     Indication: OSTEOMYELITIS
     Route: 042
  2. TRAMADOL. [Suspect]
     Active Substance: TRAMADOL
     Indication: PRODUCT USED FOR UNKNOWN INDICATION
     Route: 065

REACTIONS (20)
  - Swelling face [Recovered/Resolved]
  - Oedema [Recovered/Resolved]
  - Skin plaque [Recovered/Resolved]
  - Pallor [Recovered/Resolved]
  - Acute kidney injury [Recovered/Resolved]
  - Papule [Recovered/Resolved]
  - Urinary casts [Recovered/Resolved]
  - Acute generalised exanthematous pustulosis [Recovered/Resolved]
  - Transaminases increased [Recovered/Resolved]
  - Acantholysis [Recovered/Resolved]
  - Pyrexia [Recovered/Resolved]
  - Oral mucosa erosion [Recovered/Resolved]
  - Eosinophilia [Recovered/Resolved]
  - Rash pustular [Recovered/Resolved]
  - Neutrophilia [Recovered/Resolved]
  - Blood creatinine increased [Recovered/Resolved]
  - Macule [Recovered/Resolved]
  - Subcorneal pustular dermatosis [Recovered/Resolved]
  - Leukocytosis [Recovered/Resolved]
  - Renal tubular necrosis [Recovered/Resolved]
